FAERS Safety Report 13873244 (Version 1)
Quarter: 2017Q3

REPORT INFORMATION
  Report Type: Report from Study
  Country: JP (occurrence: JP)
  Receive Date: 20170816
  Receipt Date: 20170816
  Transmission Date: 20171127
  Serious: Yes (Death, Life-Threatening)
  Sender: FDA-Public Use
  Company Number: JP-BAUSCH-BL-2017-023969

PATIENT
  Age: 59 Year
  Sex: Female

DRUGS (7)
  1. RIFXIMA TABLETS [Suspect]
     Active Substance: RIFAXIMIN
     Indication: HYPERAMMONAEMIA
     Dosage: INTERVAL: SECOND
     Route: 048
     Dates: start: 20170629, end: 20170719
  2. OXYCONTIN [Concomitant]
     Active Substance: OXYCODONE HYDROCHLORIDE
     Indication: CANCER PAIN
     Route: 048
     Dates: start: 20170629, end: 20170717
  3. NEXIUM [Concomitant]
     Active Substance: ESOMEPRAZOLE MAGNESIUM
     Indication: GASTROOESOPHAGEAL REFLUX DISEASE
     Route: 048
     Dates: start: 20170629, end: 20170719
  4. AMINOLEBAN [Concomitant]
     Active Substance: AMINO ACIDS
     Indication: HYPERAMMONAEMIA
     Route: 042
     Dates: start: 20170718, end: 20170720
  5. PLAVIX [Concomitant]
     Active Substance: CLOPIDOGREL BISULFATE
     Indication: ANGINA PECTORIS
     Route: 048
     Dates: start: 20170629, end: 20170719
  6. MONILAC [Concomitant]
     Active Substance: LACTULOSE
     Indication: HYPERAMMONAEMIA
     Route: 048
     Dates: start: 20170629, end: 20170719
  7. CYMBALTA [Concomitant]
     Active Substance: DULOXETINE HYDROCHLORIDE
     Indication: CANCER PAIN
     Route: 048
     Dates: start: 20170629, end: 20170719

REACTIONS (9)
  - C-reactive protein increased [Fatal]
  - Cholangitis [Fatal]
  - Acute respiratory distress syndrome [Fatal]
  - Prescribed underdose [Unknown]
  - Blood glucose increased [Unknown]
  - Blood bilirubin increased [Unknown]
  - Platelet count decreased [Fatal]
  - Blood albumin decreased [Unknown]
  - Pyrexia [Unknown]

NARRATIVE: CASE EVENT DATE: 2017
